FAERS Safety Report 5902909-6 (Version None)
Quarter: 2008Q3

REPORT INFORMATION
  Report Type: 
  Country: None (occurrence: None)
  Receive Date: 20080929
  Receipt Date: 20080929
  Transmission Date: 20090109
  Serious: No
  Sender: FDA-Public Use
  Company Number: None

PATIENT
  Age: 20 Year
  Sex: Female
  Weight: 73.4827 kg

DRUGS (1)
  1. APRI ONLY ONE STRENGTH BARR [Suspect]
     Indication: DYSMENORRHOEA
     Dosage: DAILY PO
     Route: 048
     Dates: start: 20080801, end: 20080921

REACTIONS (1)
  - DYSMENORRHOEA [None]
